FAERS Safety Report 5503238-5 (Version None)
Quarter: 2007Q4

REPORT INFORMATION
  Report Type: 
  Country: None (occurrence: None)
  Receive Date: 20071031
  Receipt Date: 20050728
  Transmission Date: 20080405
  Serious: Yes (Death)
  Sender: FDA-Public Use
  Company Number: JP-PFIZER INC-2005104212

PATIENT
  Age: 59 Year
  Sex: Male

DRUGS (4)
  1. SOLU-CORTEF [Suspect]
     Indication: SEPTIC SHOCK
     Route: 042
  2. SOLU-CORTEF [Suspect]
     Indication: ADRENAL INSUFFICIENCY
  3. FLUDROCORTISONE ACETATE [Suspect]
     Indication: SEPTIC SHOCK
     Route: 050
  4. FLUDROCORTISONE ACETATE [Suspect]
     Indication: ADRENAL INSUFFICIENCY

REACTIONS (3)
  - BLOOD LACTIC ACID DECREASED [None]
  - BLOOD PRESSURE INCREASED [None]
  - INFECTION [None]
